FAERS Safety Report 17150654 (Version 1)
Quarter: 2019Q4

REPORT INFORMATION
  Report Type: Spontaneous
  Country: US (occurrence: US)
  Receive Date: 20191213
  Receipt Date: 20191213
  Transmission Date: 20200122
  Serious: Yes (Hospitalization, Other)
  Sender: FDA-Public Use
  Company Number: US-ALLERGAN-1950485US

PATIENT
  Sex: Male

DRUGS (1)
  1. VILAZODONE HCL UNK [Suspect]
     Active Substance: VILAZODONE HYDROCHLORIDE
     Indication: ACCIDENTAL EXPOSURE TO PRODUCT BY CHILD
     Dosage: 5.6 MG/KG, SINGLE
     Route: 048

REACTIONS (9)
  - Mental status changes [Recovered/Resolved]
  - Pupillary reflex impaired [Unknown]
  - Mydriasis [Unknown]
  - Vomiting [Unknown]
  - Accidental exposure to product by child [Unknown]
  - Seizure [Recovered/Resolved]
  - Tachycardia [Recovered/Resolved]
  - Hypotonia [Unknown]
  - Tremor [Recovered/Resolved]
